FAERS Safety Report 10550395 (Version 1)
Quarter: 2014Q4

REPORT INFORMATION
  Report Type: Spontaneous
  Country: US (occurrence: US)
  Receive Date: 20141029
  Receipt Date: 20141029
  Transmission Date: 20150529
  Serious: No
  Sender: FDA-Public Use
  Company Number: US-TEVA-431407USA

PATIENT
  Sex: Female
  Weight: 81.72 kg

DRUGS (20)
  1. LEXAPRO [Concomitant]
     Active Substance: ESCITALOPRAM OXALATE
     Indication: DEPRESSION
     Dosage: DAILY
     Route: 048
  2. EFFEXOR [Concomitant]
     Active Substance: VENLAFAXINE HYDROCHLORIDE
     Indication: DEPRESSION
  3. VITAMIN C [Concomitant]
     Active Substance: ASCORBIC ACID
  4. OMEGA 3 [Concomitant]
     Active Substance: OMEGA-3 FATTY ACIDS
  5. PREVACID [Concomitant]
     Active Substance: LANSOPRAZOLE
  6. PROVIGIL [Suspect]
     Active Substance: MODAFINIL
     Route: 048
  7. OMEGA-6 FATTY ACIDS [Concomitant]
     Active Substance: OMEGA-6 FATTY ACIDS
  8. AMBIEN [Concomitant]
     Active Substance: ZOLPIDEM TARTRATE
     Indication: INSOMNIA
  9. MULTIVITAMIN [Concomitant]
     Active Substance: VITAMINS
  10. VITAMIN D [Concomitant]
     Active Substance: CHOLECALCIFEROL
  11. BENEFIBER [Concomitant]
     Active Substance: STARCH, WHEAT
  12. BENADRYL [Concomitant]
     Active Substance: DIPHENHYDRAMINE HYDROCHLORIDE
  13. ASPIRIN. [Concomitant]
     Active Substance: ASPIRIN
  14. PROBIOTICA [Concomitant]
     Active Substance: PROBIOTICS NOS
  15. CALCIUM CITRATE [Concomitant]
     Active Substance: CALCIUM CITRATE
  16. HORMONE REPLACEMENT THERAPY [Concomitant]
     Active Substance: UNSPECIFIED INGREDIENT
  17. WELLBUTRIN [Concomitant]
     Active Substance: BUPROPION HYDROCHLORIDE
     Indication: DEPRESSION
     Route: 048
  18. PERCOCET [Concomitant]
     Active Substance: ACETAMINOPHEN\OXYCODONE HYDROCHLORIDE
     Dosage: 10/325 MG TID
  19. PROVELLA-14 [Concomitant]
     Active Substance: ESTROGENS, CONJUGATED\MEDROXYPROGESTERONE ACETATE
  20. PROVELLA-14 [Concomitant]
     Active Substance: ESTROGENS, CONJUGATED\MEDROXYPROGESTERONE ACETATE

REACTIONS (1)
  - Anxiety [Unknown]
